FAERS Safety Report 10424813 (Version 1)
Quarter: 2014Q3

REPORT INFORMATION
  Report Type: Spontaneous
  Country: US (occurrence: None)
  Receive Date: 20140725
  Receipt Date: 20140725
  Transmission Date: 20150326
  Serious: No
  Sender: FDA-Public Use
  Company Number: AP356-00703-SPO-US

PATIENT
  Age: 57 Year
  Sex: Male
  Weight: 134 kg

DRUGS (6)
  1. PENTOXYFLLINE [Concomitant]
  2. HCTZ (HYDROCHLOROTHIAZIDE) [Concomitant]
     Active Substance: HYDROCHLOROTHIAZIDE
  3. BELVIQ [Suspect]
     Active Substance: LORCASERIN HYDROCHLORIDE
     Indication: WEIGHT DECREASED
     Route: 048
     Dates: start: 201403
  4. QUARAPRIL (QUINAPRIL) [Concomitant]
  5. PROTONIX (PANTOPRAZOLE) [Concomitant]
  6. WARFARIN [Concomitant]
     Active Substance: WARFARIN

REACTIONS (1)
  - Constipation [None]

NARRATIVE: CASE EVENT DATE: 201404
